FAERS Safety Report 12240784 (Version 6)
Quarter: 2016Q3

REPORT INFORMATION
  Report Type: Spontaneous
  Country: GB (occurrence: GB)
  Receive Date: 20160406
  Receipt Date: 20160702
  Transmission Date: 20161109
  Serious: Yes (Hospitalization)
  Sender: FDA-Public Use
  Company Number: GB-ACCORD-039317

PATIENT
  Age: 55 Year
  Sex: Male

DRUGS (5)
  1. IRINOTECAN [Suspect]
     Active Substance: IRINOTECAN
     Indication: PRODUCT USED FOR UNKNOWN INDICATION
     Dosage: RECEIVED AS FOLFIRI REGIMEN.
     Route: 040
  2. FOLINIC ACID [Suspect]
     Active Substance: LEUCOVORIN
     Indication: PRODUCT USED FOR UNKNOWN INDICATION
     Dosage: RECEIVED AS FOLFIRI REGIMEN.??RECEIVED CYCLE 01 AND CYCLE 26.
     Route: 041
  3. ZALTRAP [Suspect]
     Active Substance: ZIV-AFLIBERCEPT
     Indication: PRODUCT USED FOR UNKNOWN INDICATION
     Dosage: ALSO RECEIVED 316 MG (SAME BATCH) CYCLICAL ON 03-FEB-2016, AND 02-MAR-2016.
     Route: 065
     Dates: start: 20160120, end: 20160120
  4. NEULASTA [Suspect]
     Active Substance: PEGFILGRASTIM
     Indication: PRODUCT USED FOR UNKNOWN INDICATION
     Route: 065
  5. FLUOROURACIL. [Suspect]
     Active Substance: FLUOROURACIL
     Indication: PRODUCT USED FOR UNKNOWN INDICATION
     Dosage: RECEIVED AS FOLFIRI REGIMEN.??RECEIVED CYCLE 01 AND CYCLE 26.
     Route: 040

REACTIONS (17)
  - Dyspepsia [Unknown]
  - Gingival pain [Unknown]
  - Oral pain [Unknown]
  - Paraesthesia mucosal [Unknown]
  - Oral herpes [Unknown]
  - Arthralgia [Unknown]
  - Pneumonia [Unknown]
  - Lip dry [Unknown]
  - Neuropathy peripheral [Unknown]
  - Dry skin [Unknown]
  - Lethargy [Unknown]
  - Dysgeusia [Unknown]
  - Paraesthesia oral [Unknown]
  - Abdominal pain upper [Unknown]
  - Alopecia [Unknown]
  - Diarrhoea [Unknown]
  - Fatigue [Not Recovered/Not Resolved]
